FAERS Safety Report 24078371 (Version 1)
Quarter: 2024Q3

REPORT INFORMATION
  Report Type: Spontaneous
  Country: US (occurrence: US)
  Receive Date: 20240711
  Receipt Date: 20240711
  Transmission Date: 20241017
  Serious: No
  Sender: NOVAST
  Company Number: US-NOVAST LABORATORIES INC.-2024NOV000234

PATIENT

DRUGS (1)
  1. MONO-LINYAH [Suspect]
     Active Substance: ETHINYL ESTRADIOL\NORGESTIMATE
     Indication: Contraception
     Dosage: 1 UNK, QD
     Route: 065

REACTIONS (2)
  - Blood copper increased [Unknown]
  - Ceruloplasmin increased [Unknown]
